FAERS Safety Report 12048752 (Version 1)
Quarter: 2016Q1

REPORT INFORMATION
  Report Type: Spontaneous
  Country: US (occurrence: US)
  Receive Date: 20160209
  Receipt Date: 20160209
  Transmission Date: 20160526
  Serious: No
  Sender: FDA-Public Use
  Company Number: US-SUN PHARMACEUTICAL INDUSTRIES LTD-2015US-105286

PATIENT
  Age: 71 Year
  Sex: Female

DRUGS (1)
  1. ULTRAVATE X [Suspect]
     Active Substance: AMMONIUM LACTATE\HALOBETASOL PROPIONATE
     Indication: DERMATITIS
     Dosage: UNK
     Route: 061

REACTIONS (1)
  - Drug ineffective [Unknown]

NARRATIVE: CASE EVENT DATE: 20150820
